FAERS Safety Report 10993783 (Version 1)
Quarter: 2015Q2

REPORT INFORMATION
  Report Type: Spontaneous
  Country: US (occurrence: None)
  Receive Date: 20150406
  Receipt Date: 20150406
  Transmission Date: 20150821
  Serious: Yes (Life-Threatening)
  Sender: FDA-Public Use
  Company Number: None

PATIENT
  Age: 69 Year
  Sex: Male
  Weight: 89.1 kg

DRUGS (1)
  1. DEXTROAMPHETAMINE [Suspect]
     Active Substance: DEXTROAMPHETAMINE
     Indication: CEREBROVASCULAR ACCIDENT
     Route: 048
     Dates: start: 20150129, end: 20150202

REACTIONS (5)
  - Brain stem infarction [None]
  - Mouth swelling [None]
  - Blood pressure increased [None]
  - Lacunar infarction [None]
  - Swollen tongue [None]

NARRATIVE: CASE EVENT DATE: 20150130
